FAERS Safety Report 4852861-X (Version None)
Quarter: 2005Q4

REPORT INFORMATION
  Report Type: 
  Country: None (occurrence: None)
  Receive Date: 20051212
  Receipt Date: 20051130
  Transmission Date: 20060501
  Serious: Yes (Life-Threatening)
  Sender: FDA-Public Use
  Company Number: SP-2005-002614

PATIENT
  Age: 42 Year
  Sex: Female

DRUGS (2)
  1. OLPRESS [Suspect]
     Indication: HYPERTENSION
     Dosage: 20 MG QD PO
     Route: 048
     Dates: start: 20050417, end: 20051003
  2. TRIATEC [Suspect]
     Indication: HYPERTENSION
     Dosage: 10 MG DAILY PO
     Route: 048
     Dates: start: 20050417, end: 20051003

REACTIONS (1)
  - HYPERKALAEMIA [None]
